FAERS Safety Report 5490928-6 (Version None)
Quarter: 2007Q4

REPORT INFORMATION
  Report Type: 
  Country: None (occurrence: None)
  Receive Date: 20071019
  Receipt Date: 20071011
  Transmission Date: 20080405
  Serious: Yes (Other)
  Sender: FDA-Public Use
  Company Number: US-PFIZER INC-2007086047

PATIENT
  Sex: Female
  Weight: 60.8 kg

DRUGS (11)
  1. ALPRAZOLAM [Suspect]
  2. ZOLOFT [Suspect]
     Indication: DEPRESSION
  3. NORVASC [Suspect]
  4. BENADRYL [Suspect]
  5. PREDNISONE [Concomitant]
     Dosage: DAILY DOSE:5MG
  6. HYDROCODONE [Concomitant]
  7. NITROSTAT [Concomitant]
  8. METRONIDAZOLE [Concomitant]
  9. ALBUTEROL [Concomitant]
  10. LOMOTIL [Concomitant]
  11. DETROL [Concomitant]

REACTIONS (6)
  - ABNORMAL DREAMS [None]
  - DEPENDENCE [None]
  - DEPRESSION [None]
  - DRUG LEVEL INCREASED [None]
  - FALL [None]
  - INSOMNIA [None]
